FAERS Safety Report 21628506 (Version 1)
Quarter: 2022Q4

REPORT INFORMATION
  Report Type: Report from Study
  Country: US (occurrence: US)
  Receive Date: 20221122
  Receipt Date: 20221122
  Transmission Date: 20230113
  Serious: No
  Sender: FDA-Public Use
  Company Number: US-ABBVIE-22K-163-4462714-00

PATIENT
  Sex: Male

DRUGS (3)
  1. SKYRIZI [Suspect]
     Active Substance: RISANKIZUMAB-RZAA
     Indication: Psoriasis
     Dosage: WEEK 0, STRENGTH: 150 MILLIGRAM
     Route: 058
     Dates: start: 20220506, end: 20220506
  2. SKYRIZI [Suspect]
     Active Substance: RISANKIZUMAB-RZAA
     Dosage: WEEK 4, STRENGTH: 150 MILLIGRAM
     Route: 058
     Dates: start: 20220603, end: 20220603
  3. SKYRIZI [Suspect]
     Active Substance: RISANKIZUMAB-RZAA
     Dosage: STRENGTH: 150 MILLIGRAM , EVERY 12 WEEKS THEREAFTER
     Route: 058
     Dates: start: 20220826

REACTIONS (8)
  - General physical condition abnormal [Unknown]
  - Cough [Unknown]
  - Nausea [Recovered/Resolved]
  - Fatigue [Unknown]
  - Nasopharyngitis [Unknown]
  - Rhinorrhoea [Unknown]
  - Viral infection [Unknown]
  - Hyperhidrosis [Recovered/Resolved]
